FAERS Safety Report 7644828-3 (Version None)
Quarter: 2011Q3

REPORT INFORMATION
  Report Type: 
  Country: None (occurrence: None)
  Receive Date: 20110725
  Receipt Date: 20110714
  Transmission Date: 20111222
  Serious: Yes (Other)
  Sender: FDA-Public Use
  Company Number: ABR_00182_2011

PATIENT
  Age: 28 Year
  Sex: Female

DRUGS (3)
  1. AMPICILLIN [Suspect]
     Indication: PRODUCT USED FOR UNKNOWN INDICATION
     Dosage: (INTRAVENOUS (NOT OTHERWISE SPECIFIED))
     Route: 042
  2. ERYTHROMYCIN [Suspect]
     Indication: PRODUCT USED FOR UNKNOWN INDICATION
     Dosage: (INTRAVENOUS (NOT OTHERWISE SPECIFIED))
     Route: 042
  3. INSULIN [Concomitant]

REACTIONS (5)
  - CANDIDIASIS [None]
  - MATERNAL EXPOSURE DURING PREGNANCY [None]
  - PREMATURE DELIVERY [None]
  - FUNISITIS [None]
  - CHORIOAMNIONITIS [None]
